FAERS Safety Report 16524954 (Version 3)
Quarter: 2020Q1

REPORT INFORMATION
  Report Type: Report from Study
  Country: CA (occurrence: CA)
  Receive Date: 20190702
  Receipt Date: 20200228
  Transmission Date: 20200409
  Serious: Yes (Other)
  Sender: FDA-Public Use
  Company Number: CA-JNJFOC-20190624220

PATIENT
  Age: 72 Year
  Sex: Male
  Weight: 101 kg

DRUGS (6)
  1. SALOFALK                           /00747601/ [Concomitant]
     Active Substance: MESALAMINE
     Dosage: ENEMA
     Dates: start: 20190723
  2. SIMPONI [Suspect]
     Active Substance: GOLIMUMAB
     Dosage: STRENGTH = 100 MG
     Route: 058
  3. SIMPONI [Suspect]
     Active Substance: GOLIMUMAB
     Route: 058
  4. SIMPONI [Suspect]
     Active Substance: GOLIMUMAB
     Indication: RHEUMATOID ARTHRITIS
     Dosage: STRENGTH = 100 MG
     Route: 058
     Dates: start: 20170605
  5. SIMPONI [Suspect]
     Active Substance: GOLIMUMAB
     Indication: COLITIS ULCERATIVE
     Route: 058
     Dates: start: 20170605
  6. SIMPONI [Suspect]
     Active Substance: GOLIMUMAB
     Route: 058

REACTIONS (8)
  - Parasitic gastroenteritis [Recovering/Resolving]
  - Flank pain [Not Recovered/Not Resolved]
  - Stress [Unknown]
  - General physical health deterioration [Recovering/Resolving]
  - Off label use [Unknown]
  - Colitis ulcerative [Recovering/Resolving]
  - Intervertebral disc protrusion [Unknown]
  - Product use issue [Unknown]

NARRATIVE: CASE EVENT DATE: 20170605
